FAERS Safety Report 4493097-4 (Version None)
Quarter: 2004Q4

REPORT INFORMATION
  Report Type: 
  Country: None (occurrence: None)
  Receive Date: 20041104
  Receipt Date: 20031202
  Transmission Date: 20050328
  Serious: Yes (Death, Hospitalization)
  Sender: FDA-Public Use
  Company Number: GB-GLAXOSMITHKLINE-B0317397A

PATIENT
  Age: 58 Year
  Sex: Female

DRUGS (3)
  1. VINORELBINE [Suspect]
     Indication: BREAST CANCER
     Dosage: 34MG PER DAY
     Route: 042
     Dates: start: 20020416
  2. CISPLATIN [Suspect]
     Indication: BREAST CANCER
     Dosage: 137MG PER DAY
     Route: 042
     Dates: start: 20020416, end: 20020416
  3. ANASTROZOLE [Concomitant]
     Route: 048
     Dates: start: 20010403

REACTIONS (5)
  - BONE MARROW DEPRESSION [None]
  - CEREBRAL HAEMORRHAGE [None]
  - CONFUSIONAL STATE [None]
  - NEUTROPENIC SEPSIS [None]
  - THROMBOCYTOPENIA [None]
